FAERS Safety Report 7055385-7 (Version None)
Quarter: 2010Q4

REPORT INFORMATION
  Report Type: 
  Country: None (occurrence: None)
  Receive Date: 20101021
  Receipt Date: 20101011
  Transmission Date: 20110411
  Serious: Yes (Hospitalization, Other)
  Sender: FDA-Public Use
  Company Number: US-ABBOTT-10P-163-0668717-00

PATIENT
  Sex: Male
  Weight: 86.26 kg

DRUGS (31)
  1. DIVALPROEX SODIUM [Suspect]
     Indication: CONVULSION
     Dates: start: 20080101, end: 20080101
  2. TRAZODONE HCL [Concomitant]
     Indication: PRODUCT USED FOR UNKNOWN INDICATION
  3. CARBAMAZEPINE [Concomitant]
     Indication: PRODUCT USED FOR UNKNOWN INDICATION
  4. PRAVACHOL [Concomitant]
     Indication: PRODUCT USED FOR UNKNOWN INDICATION
  5. TRICOR [Concomitant]
     Indication: PRODUCT USED FOR UNKNOWN INDICATION
  6. TRAMADOL [Concomitant]
     Indication: PRODUCT USED FOR UNKNOWN INDICATION
  7. CLONAZEPAM [Concomitant]
     Indication: PRODUCT USED FOR UNKNOWN INDICATION
  8. CARBIDOPA [Concomitant]
     Indication: PRODUCT USED FOR UNKNOWN INDICATION
  9. GEODON [Concomitant]
     Indication: PRODUCT USED FOR UNKNOWN INDICATION
  10. AMARYL [Concomitant]
     Indication: PRODUCT USED FOR UNKNOWN INDICATION
  11. STALEVO 100 [Concomitant]
     Indication: PARKINSON'S DISEASE
  12. GLUCOPHAGE XR [Concomitant]
     Indication: PRODUCT USED FOR UNKNOWN INDICATION
  13. CARAFATE [Concomitant]
     Indication: PRODUCT USED FOR UNKNOWN INDICATION
  14. CRATALEN [Concomitant]
     Indication: PRODUCT USED FOR UNKNOWN INDICATION
  15. GEMFIBROZIL [Concomitant]
     Indication: PRODUCT USED FOR UNKNOWN INDICATION
  16. PRINIVIL [Concomitant]
     Indication: PRODUCT USED FOR UNKNOWN INDICATION
  17. NAPRELAN [Concomitant]
     Indication: HEADACHE
     Dosage: DAILY AS NEEDED
     Route: 048
  18. LANTUS [Concomitant]
     Indication: PRODUCT USED FOR UNKNOWN INDICATION
  19. ALBUTEROL [Concomitant]
     Indication: PRODUCT USED FOR UNKNOWN INDICATION
  20. ADVAIR DISKUS 100/50 [Concomitant]
     Indication: PRODUCT USED FOR UNKNOWN INDICATION
  21. NITROGLYCERIN [Concomitant]
     Indication: PRODUCT USED FOR UNKNOWN INDICATION
     Route: 062
  22. AEROBID [Concomitant]
     Indication: PRODUCT USED FOR UNKNOWN INDICATION
  23. CARDIZEM [Concomitant]
     Indication: PRODUCT USED FOR UNKNOWN INDICATION
     Dosage: DPR
  24. CELEBREX [Concomitant]
     Indication: PRODUCT USED FOR UNKNOWN INDICATION
  25. CYMBALTA [Concomitant]
     Indication: PRODUCT USED FOR UNKNOWN INDICATION
     Route: 048
  26. DALMANE [Concomitant]
     Indication: PRODUCT USED FOR UNKNOWN INDICATION
     Dosage: AT BEDTIME
  27. EXIUM [Concomitant]
     Indication: PRODUCT USED FOR UNKNOWN INDICATION
  28. REQUIP [Concomitant]
     Indication: PRODUCT USED FOR UNKNOWN INDICATION
     Route: 048
  29. SPIRIVA [Concomitant]
     Indication: PRODUCT USED FOR UNKNOWN INDICATION
  30. XANAX [Concomitant]
     Indication: PRODUCT USED FOR UNKNOWN INDICATION
  31. ZOLOFT [Concomitant]
     Indication: PRODUCT USED FOR UNKNOWN INDICATION

REACTIONS (20)
  - AMMONIA INCREASED [None]
  - ARTHRALGIA [None]
  - ASTHENIA [None]
  - BURNING SENSATION [None]
  - CHEST PAIN [None]
  - CONFUSIONAL STATE [None]
  - CORONARY ARTERIAL STENT INSERTION [None]
  - DEMENTIA [None]
  - DYSPHAGIA [None]
  - DYSPNOEA [None]
  - FATIGUE [None]
  - HEADACHE [None]
  - HOSPITALISATION [None]
  - INSOMNIA [None]
  - NEUROPATHY PERIPHERAL [None]
  - PAIN [None]
  - PAIN IN EXTREMITY [None]
  - PARKINSON'S DISEASE [None]
  - PNEUMONIA ASPIRATION [None]
  - TONGUE DISORDER [None]
